FAERS Safety Report 11285943 (Version 1)
Quarter: 2015Q3

REPORT INFORMATION
  Report Type: Spontaneous
  Country: SK (occurrence: SK)
  Receive Date: 20150721
  Receipt Date: 20150721
  Transmission Date: 20151125
  Serious: Yes (Hospitalization, Other)
  Sender: FDA-Public Use
  Company Number: SK-HORIZON-BUP-0023-2015

PATIENT
  Sex: Female

DRUGS (4)
  1. NATRIUM BENZOATE [Concomitant]
     Indication: ORNITHINE TRANSCARBAMOYLASE DEFICIENCY
     Route: 064
  2. L-ARGININ [Concomitant]
     Indication: ORNITHINE TRANSCARBAMOYLASE DEFICIENCY
     Route: 064
  3. L-CITRULLIN [Concomitant]
     Indication: ORNITHINE TRANSCARBAMOYLASE DEFICIENCY
     Route: 064
  4. AMMONAPS TABLET [Suspect]
     Active Substance: SODIUM PHENYLBUTYRATE
     Route: 064

REACTIONS (3)
  - Foetal exposure during pregnancy [Unknown]
  - Foetal growth restriction [Unknown]
  - Premature baby [Unknown]
